FAERS Safety Report 11767641 (Version 1)
Quarter: 2015Q4

REPORT INFORMATION
  Report Type: Spontaneous
  Country: US (occurrence: US)
  Receive Date: 20151123
  Receipt Date: 20151123
  Transmission Date: 20160304
  Serious: Yes (Other)
  Sender: FDA-Public Use
  Company Number: PHHY2015US151124

PATIENT
  Age: 52 Year
  Sex: Male

DRUGS (4)
  1. LOXAPINE. [Interacting]
     Active Substance: LOXAPINE
     Indication: AUTISM SPECTRUM DISORDER
     Dosage: 5 MG, QD
     Route: 065
  2. LOXAPINE. [Interacting]
     Active Substance: LOXAPINE
     Indication: PRADER-WILLI SYNDROME
  3. PAROXETINE [Suspect]
     Active Substance: PAROXETINE\PAROXETINE HYDROCHLORIDE
     Indication: AUTISM SPECTRUM DISORDER
     Dosage: 40 MG, QD
     Route: 065
  4. PAROXETINE [Interacting]
     Active Substance: PAROXETINE\PAROXETINE HYDROCHLORIDE
     Indication: PRADER-WILLI SYNDROME

REACTIONS (4)
  - Tremor [Unknown]
  - Drug interaction [Unknown]
  - Tardive dyskinesia [Unknown]
  - Akathisia [Unknown]
